FAERS Safety Report 19178281 (Version 1)
Quarter: 2021Q2

REPORT INFORMATION
  Report Type: Spontaneous
  Country: FR (occurrence: FR)
  Receive Date: 20210426
  Receipt Date: 20210426
  Transmission Date: 20210717
  Serious: Yes (Hospitalization)
  Sender: FDA-Public Use
  Company Number: FR-TEVA-2021-FR-1903769

PATIENT
  Age: 46 Year
  Sex: Female

DRUGS (1)
  1. AMOXICILLINE BASE [Suspect]
     Active Substance: AMOXICILLIN
     Dosage: NP
     Route: 048
     Dates: end: 2017

REACTIONS (2)
  - Generalised oedema [Recovered/Resolved]
  - Urticaria [Recovered/Resolved]
